FAERS Safety Report 20542312 (Version 1)
Quarter: 2022Q1

REPORT INFORMATION
  Report Type: Spontaneous
  Country: AU (occurrence: None)
  Receive Date: 20220302
  Receipt Date: 20220302
  Transmission Date: 20220423
  Serious: Yes (Other)
  Sender: FDA-Public Use
  Company Number: 2022A085936

PATIENT
  Sex: Male

DRUGS (4)
  1. OSIMERTINIB [Suspect]
     Active Substance: OSIMERTINIB
     Indication: Glomerular filtration rate
     Route: 048
     Dates: start: 202010
  2. OSIMERTINIB [Suspect]
     Active Substance: OSIMERTINIB
     Indication: Non-small cell lung cancer stage IV
     Route: 048
     Dates: start: 202010
  3. OSIMERTINIB [Suspect]
     Active Substance: OSIMERTINIB
     Indication: Glomerular filtration rate
     Dosage: 160.0MG UNKNOWN
     Route: 048
  4. OSIMERTINIB [Suspect]
     Active Substance: OSIMERTINIB
     Indication: Non-small cell lung cancer stage IV
     Dosage: 160.0MG UNKNOWN
     Route: 048

REACTIONS (1)
  - Metastases to meninges [Unknown]
